FAERS Safety Report 5415359-6 (Version None)
Quarter: 2007Q3

REPORT INFORMATION
  Report Type: 
  Country: None (occurrence: None)
  Receive Date: 20070813
  Receipt Date: 20070724
  Transmission Date: 20080115
  Serious: Yes (Death, Hospitalization)
  Sender: FDA-Public Use
  Company Number: 2006RR-02489

PATIENT
  Age: 48 Year
  Sex: Female

DRUGS (2)
  1. DOXYCYCLINE [Suspect]
     Indication: CHLAMYDIAL INFECTION
     Dosage: ORAL
     Route: 048
  2. PREDNISOLONE [Concomitant]

REACTIONS (21)
  - ACIDOSIS [None]
  - BLOOD CREATININE INCREASED [None]
  - BLOOD ELECTROLYTES ABNORMAL [None]
  - BLOOD UREA INCREASED [None]
  - CARDIAC ARREST [None]
  - CONFUSIONAL STATE [None]
  - CONVULSION [None]
  - HAEMATEMESIS [None]
  - JAUNDICE [None]
  - PALLOR [None]
  - POLYCHROMASIA [None]
  - PROTEIN URINE PRESENT [None]
  - PYREXIA [None]
  - RED BLOOD CELL SCHISTOCYTES PRESENT [None]
  - RED BLOOD CELL SPHEROCYTES PRESENT [None]
  - RED BLOOD CELLS URINE POSITIVE [None]
  - RETINAL HAEMORRHAGE [None]
  - THROMBOTIC THROMBOCYTOPENIC PURPURA [None]
  - UNRESPONSIVE TO STIMULI [None]
  - URINARY CASTS [None]
  - VENTRICULAR ASYSTOLE [None]
